FAERS Safety Report 16395797 (Version 2)
Quarter: 2019Q3

REPORT INFORMATION
  Report Type: Report from Study
  Country: US (occurrence: US)
  Receive Date: 20190605
  Receipt Date: 20190704
  Transmission Date: 20191004
  Serious: Yes (Hospitalization)
  Sender: FDA-Public Use
  Company Number: US-PFIZER INC-2019232539

PATIENT
  Age: 67 Year
  Sex: Male
  Weight: 84.8 kg

DRUGS (12)
  1. KEPPRA [Concomitant]
     Active Substance: LEVETIRACETAM
     Dosage: UNK
     Dates: start: 201902
  2. MORPHINE SULFATE. [Concomitant]
     Active Substance: MORPHINE SULFATE
     Dosage: UNK
     Dates: start: 201904
  3. CHLORHEXIDINE [Concomitant]
     Active Substance: CHLORHEXIDINE
     Dosage: UNK
     Dates: start: 20190327
  4. LIDOCAINE. [Concomitant]
     Active Substance: LIDOCAINE
     Dosage: UNK
     Dates: start: 20190327
  5. SUNITINIB MALATE. [Suspect]
     Active Substance: SUNITINIB MALATE
     Indication: GLIOBLASTOMA
     Dosage: 50 MG, CYCLIC (DAYS 1-14)
     Route: 048
     Dates: start: 20190327, end: 20190513
  6. PHENERGAN [Concomitant]
     Active Substance: PROMETHAZINE HYDROCHLORIDE
     Dosage: UNK
     Dates: start: 201902
  7. SENNA [Concomitant]
     Active Substance: SENNA LEAF\SENNOSIDES\SENNOSIDES A AND B
     Dosage: UNK
     Dates: start: 201711
  8. PERCOCET [Concomitant]
     Active Substance: ACETAMINOPHEN\OXYCODONE HYDROCHLORIDE
     Dosage: UNK
     Dates: start: 201803
  9. PROPANOLOL [Concomitant]
     Active Substance: PROPRANOLOL HYDROCHLORIDE
     Dosage: UNK
     Dates: start: 201902
  10. MVI [Concomitant]
     Active Substance: VITAMINS
     Dosage: UNK
     Dates: start: 201903
  11. FLOMAX [Concomitant]
     Active Substance: TAMSULOSIN HYDROCHLORIDE
     Dosage: UNK
     Dates: start: 201201
  12. MOTRIN [Concomitant]
     Active Substance: IBUPROFEN
     Dosage: UNK
     Dates: start: 201903

REACTIONS (3)
  - Pyrexia [Unknown]
  - Face oedema [Unknown]
  - Fatigue [Unknown]

NARRATIVE: CASE EVENT DATE: 20190525
